FAERS Safety Report 12540717 (Version 2)
Quarter: 2016Q3

REPORT INFORMATION
  Report Type: Spontaneous
  Country: SE (occurrence: SE)
  Receive Date: 20160708
  Receipt Date: 20160728
  Transmission Date: 20161109
  Serious: Yes (Disabling)
  Sender: FDA-Public Use
  Company Number: SE-ROCHE-1790230

PATIENT
  Sex: Female
  Weight: 87 kg

DRUGS (6)
  1. ZOMETA [Concomitant]
     Active Substance: ZOLEDRONIC ACID
     Dosage: ONCE EVERY 6TH MONTH
     Route: 065
     Dates: start: 20160525
  2. HERCEPTIN [Suspect]
     Active Substance: TRASTUZUMAB
     Indication: BREAST CANCER METASTATIC
     Dosage: 500MG/400IE EVERY THIRD WEEK, ON 15/JUN/2016, SHE RECEIVED LAST DOSE OF PRIOR TO EVENT
     Route: 058
     Dates: start: 20160210
  3. TAMOXIFEN [Concomitant]
     Active Substance: TAMOXIFEN
     Indication: BREAST CANCER METASTATIC
     Route: 048
     Dates: start: 20160519, end: 20160630
  4. TAM [Concomitant]
     Indication: BREAST CANCER METASTATIC
  5. ZOLADEX [Concomitant]
     Active Substance: GOSERELIN ACETATE
     Indication: BREAST CANCER METASTATIC
     Dosage: ONCE EVERY THIRD MONTH
     Route: 065
     Dates: start: 20160525
  6. KALCIPOS D3 [Concomitant]
     Route: 065
     Dates: start: 20160525, end: 20160630

REACTIONS (2)
  - Hypertension [Recovering/Resolving]
  - Dizziness [Recovering/Resolving]

NARRATIVE: CASE EVENT DATE: 20160627
